FAERS Safety Report 24396632 (Version 1)
Quarter: 2024Q4

REPORT INFORMATION
  Report Type: Spontaneous
  Country: US (occurrence: US)
  Receive Date: 20241004
  Receipt Date: 20241004
  Transmission Date: 20250114
  Serious: No
  Sender: BIONPHARMA
  Company Number: US-Bion-013955

PATIENT
  Sex: Male

DRUGS (1)
  1. ATOVAQUONE [Suspect]
     Active Substance: ATOVAQUONE
     Indication: Product used for unknown indication

REACTIONS (3)
  - Recalled product administered [Unknown]
  - Diarrhoea [Unknown]
  - Headache [Unknown]
